FAERS Safety Report 24832581 (Version 1)
Quarter: 2025Q1

REPORT INFORMATION
  Report Type: Spontaneous
  Country: US (occurrence: US)
  Receive Date: 20250110
  Receipt Date: 20250110
  Transmission Date: 20250409
  Serious: Yes (Death)
  Sender: PERRIGO
  Company Number: US-PERRIGO-25US000433

PATIENT
  Age: 50 Year
  Sex: Male

DRUGS (3)
  1. NAPROXEN SODIUM [Suspect]
     Active Substance: NAPROXEN SODIUM
     Indication: Suspected suicide
     Route: 048
  2. DIMENHYDRINATE [Suspect]
     Active Substance: DIMENHYDRINATE
     Indication: Suspected suicide
     Route: 065
  3. ALCOHOL [Suspect]
     Active Substance: ALCOHOL
     Indication: Suspected suicide
     Route: 065

REACTIONS (2)
  - Exposure to toxic agent [Fatal]
  - Completed suicide [Fatal]

NARRATIVE: CASE EVENT DATE: 20230101
